FAERS Safety Report 18137219 (Version 1)
Quarter: 2020Q3

REPORT INFORMATION
  Report Type: Report from Study
  Country: US (occurrence: US)
  Receive Date: 20200811
  Receipt Date: 20200811
  Transmission Date: 20201103
  Serious: Yes (Death)
  Sender: FDA-Public Use
  Company Number: US-ADAMAS PHARMA, LLC-2020ADA01488

PATIENT
  Age: 75 Year
  Sex: Female

DRUGS (10)
  1. LOW ASPIRIN [Concomitant]
  2. GOCOVRI [Suspect]
     Active Substance: AMANTADINE
     Dosage: 274 MG, 1X/DAY EVERY NIGHT AT BEDTIME
     Route: 048
     Dates: start: 20200519, end: 2020
  3. TYLENOL [Concomitant]
     Active Substance: ACETAMINOPHEN
  4. VITAMIN D3 [Concomitant]
     Active Substance: CHOLECALCIFEROL
  5. NUPLAZID [Concomitant]
     Active Substance: PIMAVANSERIN TARTRATE
  6. RYTARY [Concomitant]
     Active Substance: CARBIDOPA\LEVODOPA
  7. CLONAZEPAM. [Concomitant]
     Active Substance: CLONAZEPAM
  8. GOCOVRI [Suspect]
     Active Substance: AMANTADINE
     Indication: DYSKINESIA
     Dosage: 137 MG, 1X/DAY EVERY NIGHT AT BEDTIME
     Route: 048
     Dates: start: 20200512, end: 20200518
  9. METHOCARBAMOL. [Concomitant]
     Active Substance: METHOCARBAMOL
  10. RASAGILINE. [Concomitant]
     Active Substance: RASAGILINE

REACTIONS (2)
  - Hallucination [Unknown]
  - Death [Fatal]

NARRATIVE: CASE EVENT DATE: 2020
